FAERS Safety Report 8592348-4 (Version None)
Quarter: 2012Q3

REPORT INFORMATION
  Report Type: 
  Country: None (occurrence: None)
  Receive Date: 20120814
  Receipt Date: 20120810
  Transmission Date: 20120928
  Serious: Yes (Other)
  Sender: FDA-Public Use
  Company Number: JP-PFIZER INC-2012176845

PATIENT
  Age: 3 Year
  Sex: Male

DRUGS (1)
  1. BENEFIX [Suspect]
     Dosage: UNK
     Route: 042

REACTIONS (1)
  - FACTOR IX INHIBITION [None]
